FAERS Safety Report 11247433 (Version 2)
Quarter: 2015Q3

REPORT INFORMATION
  Report Type: Spontaneous
  Country: US (occurrence: US)
  Receive Date: 20150708
  Receipt Date: 20150916
  Transmission Date: 20151125
  Serious: Yes (Other)
  Sender: FDA-Public Use
  Company Number: US-JNJFOC-20150623831

PATIENT
  Age: 42 Year
  Sex: Female
  Weight: 77.11 kg

DRUGS (2)
  1. STELARA [Suspect]
     Active Substance: USTEKINUMAB
     Indication: PSORIASIS
     Route: 058
     Dates: start: 20140409, end: 20150630
  2. DESONIDE. [Concomitant]
     Active Substance: DESONIDE
     Indication: PSORIASIS
     Route: 061

REACTIONS (1)
  - Intraductal proliferative breast lesion [Unknown]

NARRATIVE: CASE EVENT DATE: 20150608
